FAERS Safety Report 18158544 (Version 2)
Quarter: 2020Q4

REPORT INFORMATION
  Report Type: Spontaneous
  Country: DE (occurrence: DE)
  Receive Date: 20200817
  Receipt Date: 20201027
  Transmission Date: 20210113
  Serious: Yes (Other)
  Sender: FDA-Public Use
  Company Number: NVSC2020DE222998

PATIENT
  Sex: Male

DRUGS (2)
  1. DOCETAXEL. [Suspect]
     Active Substance: DOCETAXEL
     Indication: PRODUCT USED FOR UNKNOWN INDICATION
     Dosage: UNK
     Route: 065
  2. VARGATEF [Suspect]
     Active Substance: NINTEDANIB
     Indication: NON-SMALL CELL LUNG CANCER
     Dosage: 150 MG, 0.5 DAY
     Route: 048

REACTIONS (7)
  - Diarrhoea [Unknown]
  - Paraesthesia [Unknown]
  - Cataract [Unknown]
  - Myelosuppression [Recovering/Resolving]
  - Anaemia [Unknown]
  - Mesenteric panniculitis [Unknown]
  - Constipation [Unknown]
